FAERS Safety Report 17426012 (Version 2)
Quarter: 2020Q1

REPORT INFORMATION
  Report Type: Report from Study
  Country: FR (occurrence: FR)
  Receive Date: 20200217
  Receipt Date: 20200220
  Transmission Date: 20200409
  Serious: Yes (Hospitalization)
  Sender: FDA-Public Use
  Company Number: FR-ROCHE-2531903

PATIENT
  Age: 47 Year
  Sex: Female

DRUGS (6)
  1. EUROBIOL [PANCREAS EXTRACT] [Concomitant]
     Route: 048
  2. ATEZOLIZUMAB. [Suspect]
     Active Substance: ATEZOLIZUMAB
     Indication: BREAST CANCER
     Dosage: DATE OF LAST DOSE ADMINISTERED ON 30/DEC/2019
     Route: 042
     Dates: start: 20190911, end: 20200120
  3. PRIMPERAN [Concomitant]
     Active Substance: METOCLOPRAMIDE HYDROCHLORIDE
     Indication: NAUSEA
     Route: 048
  4. RUCAPARIB [Suspect]
     Active Substance: RUCAPARIB
     Indication: BREAST CANCER
     Dosage: DATE OF LAST DOSE ADMINISTERED ON 19/JAN/2020
     Route: 048
     Dates: start: 20190822, end: 20191002
  5. RUCAPARIB [Suspect]
     Active Substance: RUCAPARIB
     Route: 048
     Dates: start: 20191025, end: 20200121
  6. PRIMPERAN [Concomitant]
     Active Substance: METOCLOPRAMIDE HYDROCHLORIDE
     Indication: NAUSEA
     Route: 048

REACTIONS (4)
  - Malnutrition [Recovered/Resolved]
  - Pulmonary arterial hypertension [Not Recovered/Not Resolved]
  - Pancreatic failure [Not Recovered/Not Resolved]
  - Generalised oedema [Recovered/Resolved]

NARRATIVE: CASE EVENT DATE: 20200121
